FAERS Safety Report 14962271 (Version 1)
Quarter: 2018Q2

REPORT INFORMATION
  Report Type: Report from Study
  Country: None (occurrence: CA)
  Receive Date: 20180601
  Receipt Date: 20180601
  Transmission Date: 20180711
  Serious: Yes (Other)
  Sender: FDA-Public Use
  Company Number: CA-BAUSCH-BL-2018-015119

PATIENT
  Age: 71 Year
  Sex: Male

DRUGS (5)
  1. SALBUTAMOL SULFATE [Suspect]
     Active Substance: ALBUTEROL SULFATE
     Indication: PRODUCT USED FOR UNKNOWN INDICATION
     Route: 065
  2. TUDORZA GENUAIR FOR ORAL INHALATION [Suspect]
     Active Substance: ACLIDINIUM BROMIDE
     Indication: PRODUCT USED FOR UNKNOWN INDICATION
     Dosage: POWDER, METERED DOSE, (1 INHALER WITH 30 ACTUATIONS AND 1 INHALER WITH 60 ACTUATIONS)
     Route: 065
  3. ADVAIR HFA [Suspect]
     Active Substance: FLUTICASONE PROPIONATE\SALMETEROL XINAFOATE
     Indication: PRODUCT USED FOR UNKNOWN INDICATION
     Route: 065
  4. BREO ELLIPTA [Suspect]
     Active Substance: FLUTICASONE FUROATE\VILANTEROL TRIFENATATE
     Indication: PRODUCT USED FOR UNKNOWN INDICATION
     Dosage: (INHALATION)
     Route: 065
  5. QVAR [Suspect]
     Active Substance: BECLOMETHASONE DIPROPIONATE
     Indication: PRODUCT USED FOR UNKNOWN INDICATION
     Dosage: INHALATION
     Route: 065

REACTIONS (8)
  - Dyspnoea [Recovered/Resolved]
  - Asthma [Recovered/Resolved]
  - Heart valve replacement [Recovered/Resolved]
  - Prostate cancer [Recovered/Resolved]
  - Cough [Recovered/Resolved]
  - Pancreatitis acute [Recovered/Resolved]
  - Bacterial infection [Recovered/Resolved]
  - Cholecystectomy [Recovered/Resolved]
